FAERS Safety Report 8281596-9 (Version None)
Quarter: 2012Q2

REPORT INFORMATION
  Report Type: 
  Country: None (occurrence: None)
  Receive Date: 20120413
  Receipt Date: 20120404
  Transmission Date: 20120825
  Serious: Yes (Hospitalization)
  Sender: FDA-Public Use
  Company Number: GR-US-EMD SERONO, INC.-7124178

PATIENT
  Age: 58 Year
  Sex: Female

DRUGS (3)
  1. TRILEPTAL [Concomitant]
     Indication: DEMYELINATION
  2. REBIF [Suspect]
     Indication: MULTIPLE SCLEROSIS
     Dates: start: 20050101, end: 20120330
  3. CETIRIZINE HCL [Concomitant]
     Indication: DEMYELINATION

REACTIONS (1)
  - CHOLELITHIASIS [None]
